FAERS Safety Report 20888015 (Version 1)
Quarter: 2022Q2

REPORT INFORMATION
  Report Type: Spontaneous
  Country: FR (occurrence: FR)
  Receive Date: 20220529
  Receipt Date: 20220529
  Transmission Date: 20220720
  Serious: Yes (Other)
  Sender: FDA-Public Use
  Company Number: None

PATIENT
  Age: 64 Year
  Sex: Male
  Weight: 104 kg

DRUGS (1)
  1. NIVOLUMAB [Suspect]
     Active Substance: NIVOLUMAB
     Indication: Bladder cancer
     Route: 041
     Dates: start: 20210408

REACTIONS (2)
  - Polymyalgia rheumatica [Recovering/Resolving]
  - Intentional product use issue [Unknown]

NARRATIVE: CASE EVENT DATE: 20211001
